FAERS Safety Report 8306645-0 (Version None)
Quarter: 2012Q2

REPORT INFORMATION
  Report Type: 
  Country: None (occurrence: None)
  Receive Date: 20120424
  Receipt Date: 20120416
  Transmission Date: 20120825
  Serious: Yes (Hospitalization, Other)
  Sender: FDA-Public Use
  Company Number: US-BAYER-2011-123777

PATIENT
  Age: 34 Year
  Sex: Female
  Weight: 90.703 kg

DRUGS (4)
  1. POTASSIUM CHLORIDE [Concomitant]
     Dosage: UNK
     Dates: start: 20080201
  2. ALBUTEROL [Concomitant]
     Dosage: UNK
     Dates: start: 20080208
  3. YAZ [Suspect]
     Indication: METRORRHAGIA
     Dosage: UNK
     Dates: start: 20070815, end: 20080214
  4. PRILOSEC [Concomitant]
     Dosage: UNK
     Dates: start: 20080208

REACTIONS (10)
  - CHOLECYSTITIS ACUTE [None]
  - GALLBLADDER DISORDER [None]
  - BILE DUCT STONE [None]
  - PIGMENTATION DISORDER [None]
  - ANXIETY [None]
  - MALAISE [None]
  - INJURY [None]
  - GALLBLADDER PAIN [None]
  - GENERAL PHYSICAL HEALTH DETERIORATION [None]
  - EMOTIONAL DISTRESS [None]
